FAERS Safety Report 4623080-7 (Version None)
Quarter: 2005Q1

REPORT INFORMATION
  Report Type: 
  Country: None (occurrence: None)
  Receive Date: 20050328
  Receipt Date: 20050328
  Transmission Date: 20050727
  Serious: Yes (Life-Threatening, Hospitalization)
  Sender: FDA-Public Use
  Company Number: None

PATIENT
  Age: 73 Year
  Sex: Male

DRUGS (6)
  1. WARFARIN [Suspect]
     Indication: ATRIAL FIBRILLATION
     Dosage: 5 MG PO QHS
     Route: 048
     Dates: start: 20030731, end: 20050302
  2. COUMADIN [Concomitant]
  3. NORTRIPTYLINE HCL [Concomitant]
  4. SIMVASTATIN [Concomitant]
  5. XANAX [Concomitant]
  6. MECLIZINE [Concomitant]

REACTIONS (7)
  - CONTUSION [None]
  - EPISTAXIS [None]
  - FALL [None]
  - GROIN PAIN [None]
  - HAEMATOMA [None]
  - INTERNATIONAL NORMALISED RATIO INCREASED [None]
  - TREATMENT NONCOMPLIANCE [None]
